FAERS Safety Report 4361400-1 (Version None)
Quarter: 2004Q2

REPORT INFORMATION
  Report Type: 
  Country: None (occurrence: None)
  Receive Date: 20040517
  Receipt Date: 20040507
  Transmission Date: 20050107
  Serious: Yes (Other)
  Sender: FDA-Public Use
  Company Number: 2004031347

PATIENT
  Age: 55 Year
  Sex: Male
  Weight: 149.687 kg

DRUGS (6)
  1. ZITHROMAX [Suspect]
     Indication: PYREXIA
     Dosage: 250 MG (250 MG,DAILY), ORAL
     Route: 048
     Dates: start: 20040428, end: 20040501
  2. METFORMIN HCL [Concomitant]
  3. ALLOPURINOL [Concomitant]
  4. GLYBURIDE [Concomitant]
  5. VALSARTAN (VALSARTAN) [Concomitant]
  6. METOPROLOL (METOPROLOL) [Concomitant]

REACTIONS (4)
  - DYSGEUSIA [None]
  - FLUID INTAKE REDUCED [None]
  - MARKEDLY REDUCED DIETARY INTAKE [None]
  - WEIGHT DECREASED [None]
